FAERS Safety Report 23485936 (Version 1)
Quarter: 2024Q1

REPORT INFORMATION
  Report Type: Spontaneous
  Country: DE (occurrence: DE)
  Receive Date: 20240206
  Receipt Date: 20240206
  Transmission Date: 20240409
  Serious: No
  Sender: FDA-Public Use
  Company Number: DE-ALKEM LABORATORIES LIMITED-DE-ALKEM-2023-01147

PATIENT
  Age: 82 Year
  Sex: Male
  Weight: 74 kg

DRUGS (1)
  1. EZETIMIBE [Suspect]
     Active Substance: EZETIMIBE
     Indication: Product used for unknown indication
     Dosage: 10 MILLIGRAM, QD (TABLET)
     Route: 048
     Dates: start: 20221130, end: 20230104

REACTIONS (2)
  - Decreased appetite [Unknown]
  - Myalgia [Unknown]

NARRATIVE: CASE EVENT DATE: 20221230
